FAERS Safety Report 7372305-6 (Version None)
Quarter: 2011Q1

REPORT INFORMATION
  Report Type: 
  Country: None (occurrence: None)
  Receive Date: 20110324
  Receipt Date: 20110316
  Transmission Date: 20110831
  Serious: Yes (Life-Threatening, Hospitalization, Other)
  Sender: FDA-Public Use
  Company Number: B0681090A

PATIENT
  Sex: Female

DRUGS (3)
  1. FLUDARABINE [Suspect]
     Route: 042
     Dates: start: 20090601, end: 20091001
  2. RYTHMOL [Suspect]
     Route: 048
  3. RITUXIMAB [Suspect]
     Route: 042
     Dates: start: 20090601, end: 20091223

REACTIONS (10)
  - FATIGUE [None]
  - GENERAL PHYSICAL HEALTH DETERIORATION [None]
  - ATRIAL TACHYCARDIA [None]
  - CARDIOGENIC SHOCK [None]
  - RESPIRATORY FAILURE [None]
  - BRONCHITIS [None]
  - HYPOTENSION [None]
  - VENA CAVA THROMBOSIS [None]
  - ASTHMA [None]
  - RESPIRATORY ACIDOSIS [None]
